FAERS Safety Report 17553211 (Version 1)
Quarter: 2020Q1

REPORT INFORMATION
  Report Type: Spontaneous
  Country: US (occurrence: US)
  Receive Date: 20200317
  Receipt Date: 20200317
  Transmission Date: 20200409
  Serious: No
  Sender: FDA-Public Use
  Company Number: US-HISAMITSU-2020-US-001021

PATIENT
  Age: 66 Year
  Sex: Female
  Weight: 77.11 kg

DRUGS (4)
  1. NATURE-THROID [Concomitant]
     Active Substance: THYROID, PORCINE
  2. SALONPAS PAIN RELIEF [Suspect]
     Active Substance: MENTHOL\METHYL SALICYLATE
     Indication: ANALGESIC THERAPY
     Dosage: APPLIED 1 PATCH, REMOVED AFTER 8 HOURS
     Route: 061
     Dates: start: 20200108, end: 20200108
  3. MULTIVITAMIN [Concomitant]
     Active Substance: VITAMINS
  4. SYNTHROID [Concomitant]
     Active Substance: LEVOTHYROXINE SODIUM

REACTIONS (2)
  - Application site hypoaesthesia [Not Recovered/Not Resolved]
  - Application site bruise [Recovering/Resolving]

NARRATIVE: CASE EVENT DATE: 20200108
